FAERS Safety Report 15745849 (Version 1)
Quarter: 2018Q4

REPORT INFORMATION
  Report Type: Spontaneous
  Country: JP (occurrence: JP)
  Receive Date: 20181220
  Receipt Date: 20181220
  Transmission Date: 20190205
  Serious: Yes (Hospitalization, Other)
  Sender: FDA-Public Use
  Company Number: JP-PFIZER INC-2018522858

PATIENT
  Age: 69 Year
  Sex: Female

DRUGS (8)
  1. 5-FU [FLUOROURACIL] [Suspect]
     Active Substance: FLUOROURACIL
     Dosage: UNK
  2. AVASTIN [Suspect]
     Active Substance: BEVACIZUMAB
     Dosage: UNK
  3. XELOX [Suspect]
     Active Substance: CAPECITABINE\OXALIPLATIN
     Dosage: UNK
  4. LEVOFOLINATE YAKULT [Suspect]
     Active Substance: LEVOLEUCOVORIN CALCIUM
     Indication: RECTAL CANCER
     Dosage: UNK, 1X/DAY
     Route: 041
  5. XELODA [Suspect]
     Active Substance: CAPECITABINE
     Dosage: UNK
  6. CYRAMZA [Suspect]
     Active Substance: RAMUCIRUMAB
     Dosage: UNK
  7. ELPLAT [Suspect]
     Active Substance: OXALIPLATIN
     Indication: RECTAL CANCER
     Dosage: UNK, 1X/DAY
     Route: 041
  8. CAMPTO [Suspect]
     Active Substance: IRINOTECAN
     Indication: RECTAL CANCER
     Dosage: UNK, 1X/DAY
     Route: 041

REACTIONS (2)
  - Incarcerated hiatus hernia [Unknown]
  - Diaphragmatic rupture [Unknown]
